FAERS Safety Report 10516338 (Version 2)
Quarter: 2014Q4

REPORT INFORMATION
  Report Type: Report from Study
  Country: FR (occurrence: BE)
  Receive Date: 20141014
  Receipt Date: 20141014
  Transmission Date: 20150528
  Serious: Yes (Hospitalization)
  Sender: FDA-Public Use
  Company Number: FR-MYLANLABS-2006S1011221

PATIENT

DRUGS (6)
  1. MERCAPTAMINE BITARTRATE [Suspect]
     Active Substance: CYSTEAMINE
     Dosage: 40 MG/KG,QD
     Route: 048
  2. MERCAPTAMINE BITARTRATE [Suspect]
     Active Substance: CYSTEAMINE
     Dosage: 60 MG/KG,QD
     Route: 048
  3. MERCAPTAMINE BITARTRATE [Suspect]
     Active Substance: CYSTEAMINE
     Dosage: 20 MG/KG,QD
     Route: 048
  4. MERCAPTAMINE BITARTRATE [Suspect]
     Active Substance: CYSTEAMINE
     Indication: CYSTINOSIS
     Dosage: UNK UNK,QD
     Route: 048
     Dates: start: 20001201
  5. MERCAPTAMINE BITARTRATE [Suspect]
     Active Substance: CYSTEAMINE
     Dosage: 50 MG/KG,QD
     Route: 048
  6. OMEPRAZOLE. [Concomitant]
     Active Substance: OMEPRAZOLE
     Dosage: UNK
     Route: 048

REACTIONS (4)
  - Vomiting [Recovered/Resolved]
  - Skin odour abnormal [Recovered/Resolved]
  - Gastrointestinal disorder [Recovered/Resolved]
  - Breath odour [Recovered/Resolved]
